FAERS Safety Report 4646131-2 (Version None)
Quarter: 2005Q2

REPORT INFORMATION
  Report Type: 
  Country: None (occurrence: None)
  Receive Date: 20050425
  Receipt Date: 20050420
  Transmission Date: 20051028
  Serious: Yes (Death)
  Sender: FDA-Public Use
  Company Number: HQWYE170220APR05

PATIENT
  Age: 72 Year
  Sex: Male

DRUGS (4)
  1. CORDARONE [Suspect]
     Indication: ARRHYTHMIA
     Dosage: 200 MG 1X PER 1 DAY ORAL
     Route: 048
  2. FUROSEMIDE [Concomitant]
  3. ISOSORBIDE (ISOSORBIDE) [Concomitant]
  4. NITROGLYCERIN [Concomitant]

REACTIONS (1)
  - SUDDEN DEATH [None]
